FAERS Safety Report 9858284 (Version 1)
Quarter: 2014Q1

REPORT INFORMATION
  Report Type: Spontaneous
  Country: US (occurrence: US)
  Receive Date: 20140131
  Receipt Date: 20140131
  Transmission Date: 20141002
  Serious: Yes (Death, Hospitalization, Other)
  Sender: FDA-Public Use
  Company Number: US-BAYER-2014-012552

PATIENT
  Age: 58 Year
  Sex: Male

DRUGS (1)
  1. ALKA-SELTZER ORIGINAL [Suspect]
     Indication: DYSPEPSIA
     Dosage: 2 DF, UNK
     Route: 048
     Dates: end: 1996

REACTIONS (5)
  - Prostate cancer [Fatal]
  - Lung neoplasm malignant [Fatal]
  - Drug dependence [None]
  - Myocardial infarction [Recovered/Resolved]
  - Extra dose administered [None]
